FAERS Safety Report 14392463 (Version 2)
Quarter: 2019Q2

REPORT INFORMATION
  Report Type: Spontaneous
  Country: US (occurrence: US)
  Receive Date: 20180116
  Receipt Date: 20190513
  Transmission Date: 20190711
  Serious: Yes (Death, Hospitalization, Other)
  Sender: FDA-Public Use
  Company Number: US-PFIZER INC-2018015490

PATIENT
  Age: 71 Year
  Sex: Female

DRUGS (2)
  1. XALKORI [Suspect]
     Active Substance: CRIZOTINIB
     Indication: SMALL CELL LUNG CANCER
     Dosage: 250 MG, UNK
  2. XALKORI [Suspect]
     Active Substance: CRIZOTINIB
     Dosage: 20 MG, 1X/DAY (20MG, 1 DAILY)
     Dates: start: 201706, end: 201707

REACTIONS (8)
  - Eating disorder [Unknown]
  - Malnutrition [Not Recovered/Not Resolved]
  - Dehydration [Not Recovered/Not Resolved]
  - Gastric disorder [Not Recovered/Not Resolved]
  - Death [Fatal]
  - Weight decreased [Unknown]
  - Herpes zoster [Unknown]
  - Infection [Unknown]

NARRATIVE: CASE EVENT DATE: 201707
